FAERS Safety Report 16768670 (Version 1)
Quarter: 2019Q3

REPORT INFORMATION
  Report Type: Spontaneous
  Country: US (occurrence: US)
  Receive Date: 20190903
  Receipt Date: 20190903
  Transmission Date: 20191005
  Serious: No
  Sender: FDA-Public Use
  Company Number: US-SA-2019SA235967

PATIENT
  Age: 27 Year
  Sex: Female

DRUGS (3)
  1. IRON SUCROSE [Concomitant]
     Active Substance: IRON SUCROSE
     Dosage: UNK
  2. FERRLECIT [Suspect]
     Active Substance: SODIUM FERRIC GLUCONATE COMPLEX
     Indication: ANAEMIA
     Dosage: 125 MG, 1X (1 DOSE)
     Route: 042
     Dates: start: 20190709, end: 20190709
  3. VENOFER [Concomitant]
     Active Substance: IRON SUCROSE
     Dosage: 2 DF

REACTIONS (6)
  - Eye oedema [Recovered/Resolved]
  - Condition aggravated [Recovered/Resolved]
  - Exposure during pregnancy [Unknown]
  - Throat irritation [Recovered/Resolved]
  - Respiratory rate increased [Recovered/Resolved]
  - Lip oedema [Recovered/Resolved]

NARRATIVE: CASE EVENT DATE: 20190709
